FAERS Safety Report 25626455 (Version 6)
Quarter: 2025Q3

REPORT INFORMATION
  Report Type: Spontaneous
  Country: US (occurrence: US)
  Receive Date: 20250731
  Receipt Date: 20250924
  Transmission Date: 20251021
  Serious: Yes (Hospitalization, Other)
  Sender: ALEXION PHARMACEUTICALS
  Company Number: US-AstraZeneca-CH-00919521A

PATIENT
  Age: 86 Year
  Sex: Female
  Weight: 53.492 kg

DRUGS (3)
  1. FASLODEX [Suspect]
     Active Substance: FULVESTRANT
     Route: 065
  2. FASLODEX [Suspect]
     Active Substance: FULVESTRANT
  3. METOPROLOL [Suspect]
     Active Substance: METOPROLOL
     Route: 065

REACTIONS (36)
  - Metastasis [Unknown]
  - Gastrointestinal haemorrhage [Unknown]
  - Metastases to bone [Unknown]
  - Injection site bruising [Unknown]
  - Injection site swelling [Unknown]
  - Gait disturbance [Unknown]
  - Laboratory test abnormal [Unknown]
  - Swelling [Unknown]
  - Therapeutic response decreased [Unknown]
  - Incorrect route of product administration [Unknown]
  - Off label use [Unknown]
  - Invasive ductal breast carcinoma [Unknown]
  - Angiolymphoid hyperplasia with eosinophilia [Unknown]
  - Osteopenia [Unknown]
  - Liver disorder [Unknown]
  - Pancreatic disorder [Unknown]
  - Diverticulum intestinal [Unknown]
  - Constipation [Unknown]
  - Pneumonitis [Unknown]
  - Hepatic steatosis [Unknown]
  - Aortic arteriosclerosis [Unknown]
  - Hepatic cyst [Unknown]
  - Bronchiolitis [Unknown]
  - Bronchiectasis [Unknown]
  - Osteolysis [Unknown]
  - Pulmonary mass [Unknown]
  - Wrong technique in product usage process [Unknown]
  - Tooth disorder [Unknown]
  - Hypertension [Unknown]
  - Vertigo positional [Unknown]
  - Chest pain [Unknown]
  - Eustachian tube dysfunction [Unknown]
  - Labile blood pressure [Unknown]
  - Pain [Unknown]
  - Malignant neoplasm progression [Unknown]
  - Underdose [Unknown]

NARRATIVE: CASE EVENT DATE: 20250301
